FAERS Safety Report 10648409 (Version 1)
Quarter: 2014Q4

REPORT INFORMATION
  Report Type: Spontaneous
  Country: US (occurrence: None)
  Receive Date: 20141211
  Receipt Date: 20141211
  Transmission Date: 20150529
  Serious: No
  Sender: FDA-Public Use
  Company Number: None

PATIENT
  Age: 66 Year
  Sex: Male
  Weight: 72.58 kg

DRUGS (2)
  1. LEVOFLOXACIN. [Suspect]
     Active Substance: LEVOFLOXACIN
     Indication: SINUS CONGESTION
     Dosage: 1 TAB
     Route: 048
     Dates: start: 20140718, end: 20140724
  2. LEVOFLOXACIN. [Suspect]
     Active Substance: LEVOFLOXACIN
     Indication: NASAL CONGESTION
     Dosage: 1 TAB
     Route: 048
     Dates: start: 20140718, end: 20140724

REACTIONS (5)
  - Nerve injury [None]
  - Drug ineffective [None]
  - Musculoskeletal pain [None]
  - Tendon injury [None]
  - Pain in extremity [None]

NARRATIVE: CASE EVENT DATE: 20140718
